FAERS Safety Report 23679196 (Version 1)
Quarter: 2024Q1

REPORT INFORMATION
  Report Type: Spontaneous
  Country: KR (occurrence: KR)
  Receive Date: 20240327
  Receipt Date: 20240327
  Transmission Date: 20240410
  Serious: Yes (Death, Other)
  Sender: FDA-Public Use
  Company Number: KR-BoehringerIngelheim-2024-BI-017465

PATIENT
  Age: 81 Year
  Sex: Female

DRUGS (3)
  1. JARDIANCE [Suspect]
     Active Substance: EMPAGLIFLOZIN
     Indication: Product used for unknown indication
     Dosage: UNIT DOSE : 1 DOSAGE FORM
     Dates: start: 20230410, end: 20230601
  2. Rivaroxaban Micronized [Concomitant]
     Indication: Product used for unknown indication
     Dosage: UNIT DOSE : 1 DOSAGE FORM
     Dates: start: 20230410, end: 20230410
  3. SPIRONOLACTONE [Concomitant]
     Active Substance: SPIRONOLACTONE
     Indication: Product used for unknown indication
     Dosage: UNIT DOSE : 1 DOSAGE FORM
     Dates: start: 20230410, end: 20230410

REACTIONS (1)
  - Asthenia [Fatal]

NARRATIVE: CASE EVENT DATE: 20230410
